FAERS Safety Report 6990264-2 (Version None)
Quarter: 2010Q3

REPORT INFORMATION
  Report Type: 
  Country: None (occurrence: None)
  Receive Date: 20100916
  Receipt Date: 20100520
  Transmission Date: 20110219
  Serious: Yes (Hospitalization, Other)
  Sender: FDA-Public Use
  Company Number: US-PFIZER INC-2010035998

PATIENT
  Sex: Male
  Weight: 116 kg

DRUGS (15)
  1. LYRICA [Suspect]
     Indication: FIBROMYALGIA
     Dosage: 200MG IN THE MORNING AND 400MG AT BEDTIME
     Dates: start: 20090101
  2. LYRICA [Suspect]
     Indication: NEUROPATHY PERIPHERAL
  3. METFORMIN [Concomitant]
     Dosage: 500 MG, 2X/DAY
  4. PRILOSEC [Concomitant]
     Dosage: 20 MG, UNK
  5. METOPROLOL [Concomitant]
     Dosage: 50 MG, 2X/DAY
  6. ADDERALL 10 [Concomitant]
     Dosage: 20 MG, 2X/DAY
  7. EFFEXOR XR [Concomitant]
     Dosage: 225 MG, 1X/DAY
  8. SLOW-FE [Concomitant]
     Dosage: UNK, DAILY
  9. ALPRAZOLAM [Concomitant]
     Dosage: 0.5 MG, 2X/DAY
  10. ZANAFLEX [Concomitant]
     Dosage: 4 MG, 2X/DAY
  11. HYDROCHLOROTHIAZIDE [Concomitant]
     Dosage: 25 MG, DAILY
  12. SIMVASTATIN [Concomitant]
     Dosage: 20 MG, DAILY
  13. METHADONE [Concomitant]
     Dosage: 5MG TABLET AT BEDTIME AND 10MG ONE OR TWO TABLET THREE TIMES A DAY,
  14. ALPRAZOLAM [Concomitant]
     Dosage: 2/180 MG, IN THE MORNING
  15. TRAZODONE [Concomitant]
     Dosage: 100 MG, 1X/DAY AT BEDTIME

REACTIONS (3)
  - LIVER DISORDER [None]
  - TREMOR [None]
  - WITHDRAWAL SYNDROME [None]
